FAERS Safety Report 13753264 (Version 1)
Quarter: 2017Q3

REPORT INFORMATION
  Report Type: Report from Study
  Country: None (occurrence: US)
  Receive Date: 20170714
  Receipt Date: 20170714
  Transmission Date: 20171127
  Serious: No
  Sender: FDA-Public Use
  Company Number: US-IPSEN BIOPHARMACEUTICALS, INC.-2013-0463

PATIENT
  Sex: Female
  Weight: 17.7 kg

DRUGS (3)
  1. INCRELEX [Suspect]
     Active Substance: MECASERMIN
     Indication: PRODUCT USE IN UNAPPROVED INDICATION
  2. INCRELEX [Suspect]
     Active Substance: MECASERMIN
     Indication: BODY HEIGHT BELOW NORMAL
     Route: 058
     Dates: start: 20110720, end: 201212
  3. INCRELEX [Suspect]
     Active Substance: MECASERMIN
     Indication: GROWTH RETARDATION
     Route: 058
     Dates: end: 201303

REACTIONS (8)
  - Pain [None]
  - Pyrexia [None]
  - Therapeutic product ineffective for unapproved indication [Unknown]
  - Drug dose omission [Unknown]
  - Rhinorrhoea [None]
  - Cough [None]
  - Nasal congestion [None]
  - Injection site pain [Not Recovered/Not Resolved]
